FAERS Safety Report 25932972 (Version 1)
Quarter: 2025Q4

REPORT INFORMATION
  Report Type: Spontaneous
  Country: US (occurrence: US)
  Receive Date: 20251017
  Receipt Date: 20251017
  Transmission Date: 20260118
  Serious: No
  Sender: SANOFI AVENTIS
  Company Number: US-SA-2025SA308829

PATIENT
  Age: 77 Year
  Sex: Female

DRUGS (15)
  1. DUPIXENT [Suspect]
     Active Substance: DUPILUMAB
     Indication: Dermatitis atopic
     Dosage: 300 MG
     Route: 058
     Dates: start: 20250327
  2. BACTROBAN [Concomitant]
     Active Substance: MUPIROCIN CALCIUM
  3. METOPROLOL [Concomitant]
     Active Substance: METOPROLOL
  4. ATORVASTATIN [Concomitant]
     Active Substance: ATORVASTATIN
  5. VITAMIN D NOS [Concomitant]
     Active Substance: CHOLECALCIFEROL\ERGOCALCIFEROL
  6. TRAZODONE [Concomitant]
     Active Substance: TRAZODONE HYDROCHLORIDE
  7. MELATONIN [Concomitant]
     Active Substance: MELATONIN
  8. PANTOPRAZOLE [Concomitant]
     Active Substance: PANTOPRAZOLE
  9. PREDNISONE [Concomitant]
     Active Substance: PREDNISONE
  10. TRAMADOL [Concomitant]
     Active Substance: TRAMADOL
  11. POTASSIUM [Concomitant]
     Active Substance: POTASSIUM
  12. LISINOPRIL [Concomitant]
     Active Substance: LISINOPRIL
  13. DULOXETINE [Concomitant]
     Active Substance: DULOXETINE
  14. DIAZEPAM [Concomitant]
     Active Substance: DIAZEPAM
  15. DOXYCYCLINE [Concomitant]
     Active Substance: DOXYCYCLINE

REACTIONS (4)
  - Hot flush [Unknown]
  - Gastrooesophageal reflux disease [Unknown]
  - Muscular weakness [Unknown]
  - Headache [Unknown]
